FAERS Safety Report 9319471 (Version 1)
Quarter: 2013Q2

REPORT INFORMATION
  Report Type: Spontaneous
  Country: DE (occurrence: None)
  Receive Date: 20130528
  Receipt Date: 20130528
  Transmission Date: 20140414
  Serious: Yes (Other)
  Sender: FDA-Public Use
  Company Number: 1722919

PATIENT
  Age: 70 Year
  Sex: Female
  Weight: 61 kg

DRUGS (3)
  1. PACLITAXEL [Suspect]
     Indication: BRONCHIAL CARCINOMA
     Dosage: (NOT OTHERWISE SPECIFIED)
     Route: 042
     Dates: start: 20130103
  2. (CARBOPLATIN) [Concomitant]
  3. ( BEVACIZUMAB ) [Concomitant]

REACTIONS (4)
  - Pneumonitis [None]
  - Hypersensitivity [None]
  - Pyrexia [None]
  - Interstitial lung disease [None]
